FAERS Safety Report 9708183 (Version 1)
Quarter: 2013Q4

REPORT INFORMATION
  Report Type: Report from Study
  Country: US (occurrence: US)
  Receive Date: 20131125
  Receipt Date: 20131125
  Transmission Date: 20140711
  Serious: Yes (Hospitalization)
  Sender: FDA-Public Use
  Company Number: US-BAXTER-2013BAX045912

PATIENT
  Sex: Male
  Weight: 110.56 kg

DRUGS (9)
  1. GAMMAGARD LIQUID [Suspect]
     Indication: SUSAC^S SYNDROME
     Dosage: 0.4 GRAM/KG
     Route: 042
     Dates: start: 20130812, end: 20130814
  2. GAMMAGARD LIQUID [Suspect]
     Indication: OFF LABEL USE
     Dosage: 0.4 GRAM/KG
     Route: 042
     Dates: start: 20130911, end: 20130913
  3. GAMMAGARD LIQUID [Suspect]
     Dosage: 0.4 GRAM/KG
     Route: 042
     Dates: start: 20131009, end: 20131011
  4. OMEPRAZOLE [Concomitant]
     Indication: GASTROOESOPHAGEAL REFLUX DISEASE
     Route: 048
  5. PREDNISONE [Concomitant]
     Indication: PRODUCT USED FOR UNKNOWN INDICATION
     Route: 048
  6. OXYBUTYNIN CHLORIDE [Concomitant]
     Indication: PRODUCT USED FOR UNKNOWN INDICATION
     Route: 048
  7. MYFORTIC [Concomitant]
     Indication: PRODUCT USED FOR UNKNOWN INDICATION
     Route: 048
  8. DIAZEPAM [Concomitant]
     Indication: PRODUCT USED FOR UNKNOWN INDICATION
     Route: 048
  9. LAMICTAL [Concomitant]
     Indication: PRODUCT USED FOR UNKNOWN INDICATION
     Route: 048

REACTIONS (2)
  - Fall [Unknown]
  - Muscular weakness [Unknown]
